FAERS Safety Report 4907402-5 (Version None)
Quarter: 2006Q1

REPORT INFORMATION
  Report Type: 
  Country: None (occurrence: None)
  Receive Date: 20060208
  Receipt Date: 20060208
  Transmission Date: 20060701
  Serious: Yes (Other)
  Sender: FDA-Public Use
  Company Number: None

PATIENT
  Age: 63 Year
  Sex: Male
  Weight: 74.8435 kg

DRUGS (2)
  1. ZETIA [Suspect]
     Indication: HYPERCHOLESTEROLAEMIA
     Dosage: 10 MG ONCE DAILY PO
     Route: 048
     Dates: start: 20030501, end: 20051001
  2. NIASPAN [Suspect]
     Indication: HYPERCHOLESTEROLAEMIA
     Dosage: 750 MG ONCE DAILY PO
     Route: 048
     Dates: start: 20051115, end: 20060130

REACTIONS (3)
  - MUSCULAR WEAKNESS [None]
  - MYALGIA [None]
  - SIMILAR REACTION ON PREVIOUS EXPOSURE TO DRUG [None]
